APPROVED DRUG PRODUCT: URSO FORTE
Active Ingredient: URSODIOL
Strength: 500MG
Dosage Form/Route: TABLET;ORAL
Application: N020675 | Product #002
Applicant: ABBVIE INC
Approved: Jul 21, 2004 | RLD: Yes | RS: No | Type: DISCN